FAERS Safety Report 9347195 (Version 3)
Quarter: 2013Q4

REPORT INFORMATION
  Report Type: Spontaneous
  Country: US (occurrence: US)
  Receive Date: 20130613
  Receipt Date: 20131030
  Transmission Date: 20140711
  Serious: Yes (Disabling, Other)
  Sender: FDA-Public Use
  Company Number: US-ELI_LILLY_AND_COMPANY-US201306002077

PATIENT
  Age: 59 Year
  Sex: Female

DRUGS (7)
  1. ILETIN [Suspect]
     Indication: TYPE 1 DIABETES MELLITUS
     Route: 065
  2. HUMALOG LISPRO [Suspect]
     Indication: TYPE 1 DIABETES MELLITUS
     Route: 065
  3. HUMALOG LISPRO [Suspect]
     Indication: TYPE 1 DIABETES MELLITUS
     Dosage: 1 U, UNKNOWN
     Route: 065
     Dates: start: 201210
  4. HUMALOG LISPRO [Suspect]
     Route: 065
  5. HUMALOG LISPRO [Suspect]
     Route: 065
  6. METFORMIN [Concomitant]
     Dosage: 500 MG, BID
  7. LANTUS [Concomitant]
     Dosage: 18 U, EACH MORNING

REACTIONS (9)
  - Brain injury [Not Recovered/Not Resolved]
  - Blood glucose decreased [Unknown]
  - Visual impairment [Not Recovered/Not Resolved]
  - Hypoaesthesia [Unknown]
  - Anxiety [Unknown]
  - Glycosylated haemoglobin increased [Unknown]
  - Blood glucose increased [Unknown]
  - Underdose [Unknown]
  - Drug dose omission [Unknown]
